FAERS Safety Report 8546247-4 (Version None)
Quarter: 2012Q3

REPORT INFORMATION
  Report Type: 
  Country: None (occurrence: None)
  Receive Date: 20120727
  Receipt Date: 20120719
  Transmission Date: 20120928
  Serious: Yes (Life-Threatening, Hospitalization)
  Sender: FDA-Public Use
  Company Number: US-ABBOTT-12P-163-0909408-00

PATIENT
  Sex: Female
  Weight: 65.83 kg

DRUGS (9)
  1. SINGULAIR [Concomitant]
     Indication: RHINITIS ALLERGIC
     Dates: start: 20090831
  2. HYDROCHLOROTHIAZIDE [Concomitant]
     Indication: HYPERTENSION
     Dates: start: 20090301
  3. NOVOLOG [Concomitant]
     Indication: TYPE 2 DIABETES MELLITUS
     Dosage: 70/30
     Dates: start: 20090101
  4. METOPROLOL TARTRATE [Concomitant]
     Indication: HYPERTENSION
     Dates: start: 20090301
  5. ADVAIR DISKUS 100/50 [Concomitant]
     Indication: CHRONIC OBSTRUCTIVE PULMONARY DISEASE
     Dosage: 250/50MCG
     Dates: start: 20090831
  6. DOVONEX [Concomitant]
     Indication: PSORIASIS
     Dates: start: 20090831
  7. HUMIRA [Suspect]
     Indication: PSORIASIS
     Route: 058
     Dates: start: 20090919
  8. OMEPRAZOLE [Concomitant]
     Indication: GASTROOESOPHAGEAL REFLUX DISEASE
     Dates: start: 20090831
  9. CLOBETASOL PROPIONATE [Concomitant]
     Indication: PSORIASIS
     Dates: start: 20090831

REACTIONS (1)
  - MYOCARDIAL INFARCTION [None]
